FAERS Safety Report 6472578-8 (Version None)
Quarter: 2009Q4

REPORT INFORMATION
  Report Type: 
  Country: None (occurrence: None)
  Receive Date: 20091203
  Receipt Date: 20090105
  Transmission Date: 20100525
  Serious: No
  Sender: FDA-Public Use
  Company Number: US-AMGEN-KDL323026

PATIENT
  Sex: Female
  Weight: 96.2 kg

DRUGS (3)
  1. ENBREL [Suspect]
     Indication: RHEUMATOID ARTHRITIS
     Route: 058
     Dates: start: 20080301, end: 20080909
  2. METHOTREXATE [Concomitant]
     Route: 048
  3. UNSPECIFIED GASTROINTESTINAL AGENT [Concomitant]

REACTIONS (11)
  - ARTHRALGIA [None]
  - DYSPEPSIA [None]
  - FATIGUE [None]
  - HAEMORRHAGIC DIATHESIS [None]
  - HAIR GROWTH ABNORMAL [None]
  - INCREASED TENDENCY TO BRUISE [None]
  - INJECTION SITE PAIN [None]
  - JOINT STIFFNESS [None]
  - NASOPHARYNGITIS [None]
  - SINUSITIS [None]
  - TRICHORRHEXIS [None]
